FAERS Safety Report 8556754-6 (Version None)
Quarter: 2012Q3

REPORT INFORMATION
  Report Type: 
  Country: None (occurrence: None)
  Receive Date: 20120801
  Receipt Date: 20120723
  Transmission Date: 20120928
  Serious: Yes (Hospitalization)
  Sender: FDA-Public Use
  Company Number: US-BAYER-2012-074376

PATIENT
  Age: 31 Year
  Sex: Female

DRUGS (4)
  1. I.V. SOLUTIONS [Concomitant]
     Indication: DEHYDRATION
     Route: 042
  2. DROSPIRENONE AND ETHINYL ESTRADIOL [Suspect]
  3. I.V. SOLUTIONS [Concomitant]
     Indication: BLOOD PRESSURE DECREASED
  4. YASMIN [Suspect]
     Indication: POLYCYSTIC OVARIES

REACTIONS (1)
  - PULMONARY EMBOLISM [None]
